FAERS Safety Report 9735085 (Version 1)
Quarter: 2013Q4

REPORT INFORMATION
  Report Type: Spontaneous
  Country: BR (occurrence: BR)
  Receive Date: 20131206
  Receipt Date: 20131206
  Transmission Date: 20140711
  Serious: Yes (Hospitalization)
  Sender: FDA-Public Use
  Company Number: BR-AMGEN-BRASP2013085933

PATIENT
  Age: 71 Year
  Sex: Female
  Weight: 60 kg

DRUGS (6)
  1. ENBREL [Suspect]
     Indication: RHEUMATOID ARTHRITIS
     Dosage: UNK
     Route: 065
     Dates: start: 20120404
  2. PREDNISONE [Concomitant]
     Dosage: UNK
  3. LOSARTAN [Concomitant]
     Dosage: UNK
  4. PROPRANOLOL [Concomitant]
     Dosage: UNK
  5. METHOTREXATE [Concomitant]
     Dosage: UNK
  6. CHLOROQUINE [Concomitant]
     Dosage: UNK

REACTIONS (3)
  - Cardiac valve disease [Unknown]
  - Feeling abnormal [Unknown]
  - Dyspnoea [Unknown]
